FAERS Safety Report 17529551 (Version 1)
Quarter: 2020Q1

REPORT INFORMATION
  Report Type: Spontaneous
  Country: IT (occurrence: IT)
  Receive Date: 20200312
  Receipt Date: 20200312
  Transmission Date: 20200409
  Serious: Yes (Other)
  Sender: FDA-Public Use
  Company Number: IT-AUROBINDO-AUR-APL-2020-012372

PATIENT
  Age: 36 Year
  Sex: Male

DRUGS (2)
  1. ESOMEPRAZOLE. [Suspect]
     Active Substance: ESOMEPRAZOLE MAGNESIUM
     Indication: GASTRIC DISORDER
     Dosage: 1 DOSAGE FORM, TOTAL
     Route: 048
     Dates: start: 20200131, end: 20200131
  2. OKI [Suspect]
     Active Substance: KETOPROFEN LYSINE
     Indication: PAIN
     Dosage: 80 MILLIGRAM, TOTAL
     Route: 048
     Dates: start: 20200131, end: 20200131

REACTIONS (3)
  - Periorbital oedema [Recovering/Resolving]
  - Pruritus [Recovering/Resolving]
  - Rash [Recovering/Resolving]

NARRATIVE: CASE EVENT DATE: 20200131
